FAERS Safety Report 24352253 (Version 1)
Quarter: 2024Q3

REPORT INFORMATION
  Report Type: Report from Study
  Country: US (occurrence: US)
  Receive Date: 20240923
  Receipt Date: 20240923
  Transmission Date: 20241016
  Serious: No
  Sender: ROCHE
  Company Number: US-ROCHE-3365466

PATIENT
  Age: 82 Year
  Sex: Male

DRUGS (5)
  1. HERCEPTIN [Suspect]
     Active Substance: TRASTUZUMAB
     Indication: Oesophageal carcinoma
     Dosage: DATE OF SERVICE: 05/JUL/2023, 05/AUG/2024
     Route: 065
  2. FLUOROURACIL [Concomitant]
     Active Substance: FLUOROURACIL
  3. LEUCOVORIN [Concomitant]
     Active Substance: LEUCOVORIN\LEUCOVORIN CALCIUM
  4. OXALIPLATIN [Concomitant]
     Active Substance: OXALIPLATIN
  5. OPDIVO [Concomitant]
     Active Substance: NIVOLUMAB

REACTIONS (2)
  - Off label use [Unknown]
  - No adverse event [Unknown]
